FAERS Safety Report 16355993 (Version 1)
Quarter: 2019Q2

REPORT INFORMATION
  Report Type: Spontaneous
  Country: US (occurrence: US)
  Receive Date: 20190526
  Receipt Date: 20190526
  Transmission Date: 20190711
  Serious: No
  Sender: FDA-Public Use
  Company Number: US-009507513-1905USA002807

PATIENT
  Age: 70 Year
  Sex: Male

DRUGS (1)
  1. KEYTRUDA [Suspect]
     Active Substance: PEMBROLIZUMAB
     Indication: LUNG CANCER METASTATIC
     Dosage: 200MG EVERY 3 WEEKS
     Route: 042
     Dates: start: 201811

REACTIONS (3)
  - Cough [Unknown]
  - Oxygen saturation decreased [Unknown]
  - Productive cough [Unknown]
